FAERS Safety Report 5627630-3 (Version None)
Quarter: 2008Q1

REPORT INFORMATION
  Report Type: 
  Country: None (occurrence: None)
  Receive Date: 20080215
  Receipt Date: 20080206
  Transmission Date: 20080703
  Serious: Yes (Other)
  Sender: FDA-Public Use
  Company Number: US-ROCHE-459007

PATIENT
  Age: 17 Year
  Sex: Male
  Weight: 63.5 kg

DRUGS (4)
  1. ACCUTANE [Suspect]
     Route: 048
     Dates: start: 19990801, end: 19991201
  2. ACCUTANE [Suspect]
     Route: 048
     Dates: start: 19980715, end: 19981201
  3. CEPHALEXIN [Concomitant]
  4. ANTIBIOTIC NOS [Concomitant]
     Indication: PARONYCHIA
     Dates: start: 19991001, end: 19991001

REACTIONS (4)
  - CHOLANGITIS SCLEROSING [None]
  - COLITIS ULCERATIVE [None]
  - IRON DEFICIENCY ANAEMIA [None]
  - PARONYCHIA [None]
